FAERS Safety Report 8125628-7 (Version None)
Quarter: 2012Q1

REPORT INFORMATION
  Report Type: 
  Country: None (occurrence: None)
  Receive Date: 20120209
  Receipt Date: 20120202
  Transmission Date: 20120608
  Serious: Yes (Life-Threatening)
  Sender: FDA-Public Use
  Company Number: JP-EISAI INC-E2090-01943-SPO-JP

PATIENT
  Sex: Female

DRUGS (16)
  1. ZONISAMIDE [Suspect]
     Indication: CONVULSION PROPHYLAXIS
     Dosage: 200 MG DAILY
     Route: 048
     Dates: start: 20120105
  2. PURSENNID [Concomitant]
  3. MAGNESIUM SULFATE [Concomitant]
     Dosage: 990 MG DAILY
  4. PREDNISOLONE [Concomitant]
     Dosage: 2.5 MG DAILY
  5. URSO 250 [Concomitant]
     Dosage: 300 MG DAILY
     Route: 048
  6. VITAMEDIN [Concomitant]
  7. MEILAX [Concomitant]
     Dosage: 0.5 MG DAILY
     Route: 048
  8. LOBU [Concomitant]
  9. CEFOTIAM HYDROCHLORIDE [Concomitant]
  10. CANDESARTAN CILEXETIL [Concomitant]
     Dosage: 8 MG DAILY
     Route: 048
  11. FERROUS CITRATE [Concomitant]
  12. DEPAKENE [Suspect]
     Indication: CONVULSION PROPHYLAXIS
     Dosage: 800 MG DAILY
     Route: 048
     Dates: start: 20111213, end: 20120105
  13. MUCOSTA [Concomitant]
  14. FAMOTIDINE [Concomitant]
     Dosage: 40 MG DAILY
     Route: 048
  15. ASCORBIC ACID [Concomitant]
  16. MIRACLID [Concomitant]

REACTIONS (1)
  - TOXIC EPIDERMAL NECROLYSIS [None]
